FAERS Safety Report 25063567 (Version 4)
Quarter: 2025Q4

REPORT INFORMATION
  Report Type: Spontaneous
  Country: JP (occurrence: JP)
  Receive Date: 20250311
  Receipt Date: 20251204
  Transmission Date: 20260118
  Serious: Yes (Hospitalization, Other)
  Sender: PFIZER
  Company Number: JP-PFIZER INC-PV202500028890

PATIENT
  Age: 80 Year
  Sex: Female

DRUGS (8)
  1. IBRANCE [Suspect]
     Active Substance: PALBOCICLIB
     Indication: Breast cancer
     Dosage: 125 MG, DAILY
     Route: 048
     Dates: start: 20231226
  2. IBRANCE [Suspect]
     Active Substance: PALBOCICLIB
     Dosage: 100 MG, DAILY
     Route: 048
  3. IBRANCE [Suspect]
     Active Substance: PALBOCICLIB
     Dosage: 75 MG, DAILY
     Route: 048
  4. IBRANCE [Suspect]
     Active Substance: PALBOCICLIB
     Dosage: 50 MG, DAILY
     Route: 048
     Dates: start: 202501, end: 20250218
  5. CLARITHROMYCIN [Concomitant]
     Active Substance: CLARITHROMYCIN
     Indication: Sinusitis
  6. LIMAPROST [Concomitant]
     Active Substance: LIMAPROST
     Indication: Lumbar spinal stenosis
  7. CARVEDILOL [Concomitant]
     Active Substance: CARVEDILOL
  8. ZOLPIDEM [Concomitant]
     Active Substance: ZOLPIDEM TARTRATE
     Indication: Insomnia

REACTIONS (3)
  - Aplasia pure red cell [Recovering/Resolving]
  - Neutrophil count decreased [Recovering/Resolving]
  - Off label use [Unknown]

NARRATIVE: CASE EVENT DATE: 20250101
